FAERS Safety Report 5199880-4 (Version None)
Quarter: 2007Q1

REPORT INFORMATION
  Report Type: 
  Country: None (occurrence: None)
  Receive Date: 20070103
  Receipt Date: 20070103
  Transmission Date: 20070707
  Serious: Yes (Hospitalization)
  Sender: FDA-Public Use
  Company Number: None

PATIENT
  Age: 63 Year
  Sex: Male
  Weight: 72.9 kg

DRUGS (8)
  1. CETUXIMAB (CETUXIMAB) [Suspect]
     Indication: COLON CANCER
     Dosage: SEE IMAGE
     Route: 042
     Dates: start: 20050414, end: 20050414
  2. CETUXIMAB (CETUXIMAB) [Suspect]
     Indication: COLON CANCER
     Dosage: SEE IMAGE
     Route: 042
     Dates: start: 20050428, end: 20050428
  3. CETUXIMAB (CETUXIMAB) [Suspect]
     Indication: COLON CANCER
     Dosage: SEE IMAGE
     Route: 042
     Dates: start: 20050512, end: 20050512
  4. BEST SUPPORTIVE CARE [Suspect]
     Indication: COLON CANCER
  5. DOCUSATE SODIUM (DOCUSATE SODIUM) [Concomitant]
  6. MULTIVITAMIN (MULTIPLE VITAMINS) [Concomitant]
  7. IRON (IRON) [Concomitant]
  8. ASCORBIC ACID [Concomitant]

REACTIONS (4)
  - ABDOMINAL PAIN UPPER [None]
  - CONFUSIONAL STATE [None]
  - FATIGUE [None]
  - HYPERHIDROSIS [None]
